FAERS Safety Report 6567277-8 (Version None)
Quarter: 2010Q1

REPORT INFORMATION
  Report Type: 
  Country: None (occurrence: None)
  Receive Date: 20100202
  Receipt Date: 20100125
  Transmission Date: 20100710
  Serious: Yes (Hospitalization)
  Sender: FDA-Public Use
  Company Number: JP-ROCHE-681860

PATIENT
  Sex: Male

DRUGS (18)
  1. TOCILIZUMAB [Suspect]
     Indication: RHEUMATOID ARTHRITIS
     Route: 041
     Dates: start: 20090903, end: 20090903
  2. TOCILIZUMAB [Suspect]
     Route: 041
     Dates: start: 20090925, end: 20090925
  3. TOCILIZUMAB [Suspect]
     Route: 041
     Dates: start: 20091021, end: 20091021
  4. TOCILIZUMAB [Suspect]
     Route: 041
     Dates: start: 20091117, end: 20091117
  5. TOCILIZUMAB [Suspect]
     Route: 041
     Dates: start: 20091216, end: 20091216
  6. PREDONINE [Concomitant]
     Route: 048
  7. NORVASC [Concomitant]
     Route: 048
  8. NU-LOTAN [Concomitant]
     Route: 048
  9. THEO-DUR [Concomitant]
     Dosage: FORM: ORAL FORMULATION
     Route: 048
  10. BASEN [Concomitant]
     Route: 048
  11. LOXONIN [Concomitant]
     Dosage: FORM: ORAL FORMULATION.
     Route: 048
  12. ACTONEL [Concomitant]
     Route: 048
  13. ASPIRIN [Concomitant]
     Dosage: FROM: ENTERIC
     Route: 048
  14. LASIX [Concomitant]
     Dosage: FORM: ORAL FORMULATION.
     Route: 048
  15. SPIRONOLACTONE [Concomitant]
     Dosage: DRUG: APORASNON.
     Route: 048
  16. HOKUNALIN [Concomitant]
     Dosage: DRUG: HOKUNALIN:TAPE, FORM: TAPE
     Route: 062
  17. PARIET [Concomitant]
     Route: 048
  18. HOCHU-EKKI-TO [Concomitant]
     Route: 048

REACTIONS (1)
  - CARDIAC FAILURE [None]
